FAERS Safety Report 4808836-X (Version None)
Quarter: 2005Q4

REPORT INFORMATION
  Report Type: 
  Country: None (occurrence: None)
  Receive Date: 20051025
  Receipt Date: 20020502
  Transmission Date: 20060501
  Serious: Yes (Hospitalization, Disabling, Other)
  Sender: FDA-Public Use
  Company Number: US-MERCK-0205USA00564

PATIENT
  Age: 54 Year
  Sex: Female

DRUGS (13)
  1. VIOXX [Suspect]
     Indication: ARTHRITIS
     Route: 048
     Dates: start: 20010401
  2. LOPID [Concomitant]
     Route: 065
  3. INDERAL [Concomitant]
     Route: 065
  4. ALLEGRA [Concomitant]
     Route: 065
  5. PREMARIN [Concomitant]
     Route: 048
  6. VITAMIN E [Concomitant]
     Route: 065
  7. VITAMINS (UNSPECIFIED) [Concomitant]
     Route: 065
  8. PLAVIX [Concomitant]
     Route: 065
  9. ZESTRIL [Concomitant]
     Route: 065
  10. METFORMIN [Concomitant]
     Route: 065
  11. FOLIC ACID [Concomitant]
     Route: 065
  12. MOBIC [Concomitant]
     Route: 065
  13. WELLBUTRIN [Concomitant]
     Route: 065

REACTIONS (6)
  - CEREBROVASCULAR ACCIDENT [None]
  - COGNITIVE DISORDER [None]
  - HEMIPARESIS [None]
  - ISCHAEMIC STROKE [None]
  - MIGRAINE [None]
  - TRANSIENT ISCHAEMIC ATTACK [None]
